FAERS Safety Report 22349404 (Version 1)
Quarter: 2023Q2

REPORT INFORMATION
  Report Type: Spontaneous
  Country: US (occurrence: None)
  Receive Date: 20230519
  Receipt Date: 20230519
  Transmission Date: 20230721
  Serious: Yes (Life-Threatening)
  Sender: FDA-Public Use
  Company Number: None

PATIENT
  Age: 69 Year
  Sex: Male
  Weight: 72.9 kg

DRUGS (8)
  1. ATORVASTATIN [Suspect]
     Active Substance: ATORVASTATIN
     Indication: Cardiac disorder
     Dosage: 1 TABLET AT BEDTIME ORAL
     Route: 048
     Dates: start: 20230405, end: 20230515
  2. EZETIMIBE [Suspect]
     Active Substance: EZETIMIBE
  3. XANAX [Concomitant]
     Active Substance: ALPRAZOLAM
  4. Albuterol inhaled [Concomitant]
  5. MAGNESIUM [Concomitant]
     Active Substance: MAGNESIUM
  6. COENZYME Q10 [Concomitant]
     Active Substance: DIETARY SUPPLEMENT\UBIDECARENONE
  7. MENAQUINONE 6 [Concomitant]
     Active Substance: MENAQUINONE 6
  8. VITAMIN D3 [Concomitant]
     Active Substance: CHOLECALCIFEROL

REACTIONS (4)
  - Lipids increased [None]
  - Myocardial infarction [None]
  - Arterial occlusive disease [None]
  - Suspected counterfeit product [None]

NARRATIVE: CASE EVENT DATE: 20230405
